FAERS Safety Report 23243250 (Version 2)
Quarter: 2024Q2

REPORT INFORMATION
  Report Type: Spontaneous
  Country: US (occurrence: US)
  Receive Date: 20231130
  Receipt Date: 20240413
  Transmission Date: 20240715
  Serious: No
  Sender: FDA-Public Use
  Company Number: US-ALXN-202311USA001591US

PATIENT
  Sex: Female

DRUGS (1)
  1. SOLIRIS [Suspect]
     Active Substance: ECULIZUMAB
     Indication: Neuromyelitis optica spectrum disorder
     Dosage: 1200 MILLIGRAM, Q2W
     Route: 042
     Dates: start: 202209

REACTIONS (1)
  - Bone pain [Unknown]
